FAERS Safety Report 4954820-5 (Version None)
Quarter: 2006Q1

REPORT INFORMATION
  Report Type: 
  Country: None (occurrence: None)
  Receive Date: 20060327
  Receipt Date: 20050907
  Transmission Date: 20060701
  Serious: Yes (Hospitalization)
  Sender: FDA-Public Use
  Company Number: US-MERCK-0509USA00789

PATIENT
  Age: 65 Year
  Sex: Male
  Weight: 102 kg

DRUGS (4)
  1. VIOXX [Suspect]
     Indication: ARTHRITIS
     Route: 048
     Dates: start: 20030101, end: 20031201
  2. NEXIUM [Concomitant]
     Indication: GASTROOESOPHAGEAL REFLUX DISEASE
     Route: 065
  3. NEURONTIN [Concomitant]
     Route: 065
  4. VICODIN [Concomitant]
     Route: 065

REACTIONS (17)
  - ARRHYTHMIA [None]
  - CAROTID ARTERY DISEASE [None]
  - CATARACT [None]
  - CEREBRAL ARTERY STENOSIS [None]
  - DEAFNESS [None]
  - DERMATITIS CONTACT [None]
  - DRUG HYPERSENSITIVITY [None]
  - FACIAL PAIN [None]
  - HEARING IMPAIRED [None]
  - HYPERTENSION [None]
  - IODINE ALLERGY [None]
  - MITRAL VALVE INCOMPETENCE [None]
  - MUSCULOSKELETAL DISCOMFORT [None]
  - MYOCARDIAL INFARCTION [None]
  - RHINORRHOEA [None]
  - SYNCOPE [None]
  - VISION BLURRED [None]
